FAERS Safety Report 5312684-4 (Version None)
Quarter: 2007Q2

REPORT INFORMATION
  Report Type: 
  Country: None (occurrence: None)
  Receive Date: 20070430
  Receipt Date: 20070202
  Transmission Date: 20071010
  Serious: No
  Sender: FDA-Public Use
  Company Number: 2007UW02304

PATIENT
  Age: 84 Year
  Sex: Female
  Weight: 77.6 kg

DRUGS (5)
  1. NEXIUM [Suspect]
     Indication: GASTROOESOPHAGEAL REFLUX DISEASE
     Route: 048
  2. HIGH BLOOD PRESSURE MEDICATION [Concomitant]
     Indication: BLOOD PRESSURE INCREASED
  3. GLAUCOMA [Concomitant]
     Indication: GLAUCOMA
     Route: 047
  4. ASPIRIN [Concomitant]
  5. VITAMINS [Concomitant]

REACTIONS (4)
  - CONSTIPATION [None]
  - HEADACHE [None]
  - NAUSEA [None]
  - UNEVALUABLE EVENT [None]
